FAERS Safety Report 7159966-1 (Version None)
Quarter: 2010Q4

REPORT INFORMATION
  Report Type: 
  Country: None (occurrence: None)
  Receive Date: 20101214
  Receipt Date: 20101129
  Transmission Date: 20110411
  Serious: Yes (Other)
  Sender: FDA-Public Use
  Company Number: NO-GENENTECH-310804

PATIENT
  Sex: Female

DRUGS (3)
  1. XOLAIR [Suspect]
     Indication: ASTHMA
     Dosage: 225 MG, UNK
     Dates: start: 20100215
  2. STEROIDS (UNK INGREDIENTS) [Concomitant]
     Indication: ASTHMA
  3. BLOOD PRESSURE MEDICATION NOS [Concomitant]
     Indication: BLOOD PRESSURE

REACTIONS (5)
  - HEADACHE [None]
  - HYPERSENSITIVITY [None]
  - PRODUCT TASTE ABNORMAL [None]
  - PYREXIA [None]
  - SKIN ODOUR ABNORMAL [None]
